FAERS Safety Report 21193407 (Version 1)
Quarter: 2022Q3

REPORT INFORMATION
  Report Type: Spontaneous
  Country: FR (occurrence: FR)
  Receive Date: 20220810
  Receipt Date: 20220810
  Transmission Date: 20221027
  Serious: Yes (Life-Threatening, Other)
  Sender: FDA-Public Use
  Company Number: None

PATIENT
  Age: 76 Year
  Sex: Female
  Weight: 74 kg

DRUGS (4)
  1. HYDREA [Suspect]
     Active Substance: HYDROXYUREA
     Indication: Polycythaemia vera
     Route: 048
     Dates: start: 2010, end: 201610
  2. RUXOLITINIB [Suspect]
     Active Substance: RUXOLITINIB
     Indication: Polycythaemia vera
     Route: 048
     Dates: start: 201610, end: 20220630
  3. PERINDOPRIL TOSILATE/INDAPAMIDE TEVA [Concomitant]
     Indication: Product used for unknown indication
     Dosage: 10 MG/2,5 MG, COMPRIM? PELLICUL?
     Route: 065
  4. ATORVASTATINE ARROW GENERIQUES [Concomitant]
     Indication: Product used for unknown indication
     Route: 065

REACTIONS (2)
  - Central nervous system lymphoma [Not Recovered/Not Resolved]
  - Diffuse large B-cell lymphoma [Not Recovered/Not Resolved]

NARRATIVE: CASE EVENT DATE: 20220621
